FAERS Safety Report 7460675-X (Version None)
Quarter: 2011Q2

REPORT INFORMATION
  Report Type: 
  Country: None (occurrence: None)
  Receive Date: 20110505
  Receipt Date: 20110502
  Transmission Date: 20111010
  Serious: Yes (Other)
  Sender: FDA-Public Use
  Company Number: JP-PFIZER INC-2011093369

PATIENT
  Sex: Male

DRUGS (2)
  1. ARTANE [Suspect]
     Dosage: 4 MG, 1X/DAY
     Route: 048
  2. ARTANE [Suspect]
     Indication: DYSTONIA
     Dosage: 2 MG, 1X/DAY
     Route: 048
     Dates: start: 20110201

REACTIONS (5)
  - SOMNOLENCE [None]
  - DRUG INEFFECTIVE [None]
  - ANAEMIA [None]
  - PRESYNCOPE [None]
  - ASTHENIA [None]
